FAERS Safety Report 6356202-0 (Version None)
Quarter: 2009Q3

REPORT INFORMATION
  Report Type: 
  Country: None (occurrence: None)
  Receive Date: 20090911
  Receipt Date: 20090911
  Transmission Date: 20100115
  Serious: Yes (Hospitalization)
  Sender: FDA-Public Use
  Company Number: None

PATIENT
  Sex: Female
  Weight: 81.6475 kg

DRUGS (1)
  1. LEVETIRACETAM [Suspect]
     Dosage: 750 MG TWICE PER DAY PO
     Route: 048
     Dates: start: 20090717, end: 20090908

REACTIONS (10)
  - ANGER [None]
  - BALANCE DISORDER [None]
  - EMOTIONAL DISORDER [None]
  - FEELING ABNORMAL [None]
  - HALLUCINATION, VISUAL [None]
  - HEADACHE [None]
  - PARTIAL SEIZURES [None]
  - PRODUCT SUBSTITUTION ISSUE [None]
  - VERTIGO [None]
  - VISION BLURRED [None]
